FAERS Safety Report 10243626 (Version 1)
Quarter: 2014Q2

REPORT INFORMATION
  Report Type: Spontaneous
  Country: US (occurrence: US)
  Receive Date: 20140618
  Receipt Date: 20140618
  Transmission Date: 20141212
  Serious: No
  Sender: FDA-Public Use
  Company Number: US-PFIZER INC-2014166071

PATIENT
  Age: 71 Year
  Sex: Female

DRUGS (2)
  1. XELJANZ [Suspect]
     Dosage: 5 MG, UNK
     Dates: start: 20140602
  2. NSAID^S [Interacting]
     Dosage: UNK

REACTIONS (4)
  - Abdominal pain upper [Unknown]
  - Flatulence [Unknown]
  - Dizziness [Unknown]
  - Drug interaction [Unknown]
